FAERS Safety Report 9348448 (Version 1)
Quarter: 2013Q2

REPORT INFORMATION
  Report Type: Spontaneous
  Country: JP (occurrence: JP)
  Receive Date: 20130614
  Receipt Date: 20130614
  Transmission Date: 20140414
  Serious: Yes (Other)
  Sender: FDA-Public Use
  Company Number: JP-ASTELLAS-2013JP005884

PATIENT
  Age: 80 Year
  Sex: Female

DRUGS (4)
  1. BETANIS [Suspect]
     Indication: HYPERTONIC BLADDER
     Dosage: 50 MG, UID/QD
     Route: 048
     Dates: start: 20130213, end: 20130214
  2. ADALAT CR [Concomitant]
     Dosage: 10 MG, UID/QD
     Route: 048
  3. DIOVAN [Concomitant]
     Dosage: 80 MG, UID/QD
     Route: 048
  4. LIPLE [Concomitant]
     Dosage: 10 UG, WEEKLY
     Route: 065

REACTIONS (2)
  - Palpitations [Recovered/Resolved]
  - Chest discomfort [Recovered/Resolved]
